FAERS Safety Report 8451631-3 (Version None)
Quarter: 2012Q2

REPORT INFORMATION
  Report Type: 
  Country: None (occurrence: None)
  Receive Date: 20120620
  Receipt Date: 20120319
  Transmission Date: 20120825
  Serious: No
  Sender: FDA-Public Use
  Company Number: US-VERTEX PHARMACEUTICALS INC.-AE-2012-003477

PATIENT
  Sex: Female
  Weight: 64.922 kg

DRUGS (5)
  1. SYNTHROID [Concomitant]
  2. RIBAVIRIN [Concomitant]
     Indication: HEPATITIS C
     Route: 048
     Dates: start: 20120305
  3. TEMAZEPAM [Concomitant]
  4. INCIVEK [Suspect]
     Indication: HEPATITIS C
     Route: 048
     Dates: start: 20120305
  5. PEGASYS [Concomitant]
     Indication: HEPATITIS C
     Route: 058
     Dates: start: 20120305

REACTIONS (4)
  - FEELING HOT [None]
  - INJECTION SITE HAEMATOMA [None]
  - MALAISE [None]
  - INJECTION SITE ERYTHEMA [None]
